FAERS Safety Report 10716743 (Version 1)
Quarter: 2015Q1

REPORT INFORMATION
  Report Type: Spontaneous
  Country: US (occurrence: None)
  Receive Date: 20150115
  Receipt Date: 20150115
  Transmission Date: 20150721
  Serious: Yes (Disabling)
  Sender: FDA-Public Use
  Company Number: None

PATIENT
  Age: 60 Year
  Sex: Female
  Weight: 72.58 kg

DRUGS (1)
  1. LEVAQUIN [Suspect]
     Active Substance: LEVOFLOXACIN
     Indication: BRONCHITIS
     Dosage: 1 PILL DAY, ONCE DAILY
     Route: 048
     Dates: start: 20141212, end: 20141218

REACTIONS (3)
  - Tendonitis [None]
  - Musculoskeletal pain [None]
  - Impaired work ability [None]

NARRATIVE: CASE EVENT DATE: 20141212
